FAERS Safety Report 20604002 (Version 1)
Quarter: 2022Q1

REPORT INFORMATION
  Report Type: Spontaneous
  Country: US (occurrence: US)
  Receive Date: 20220316
  Receipt Date: 20220316
  Transmission Date: 20220423
  Serious: No
  Sender: FDA-Public Use
  Company Number: US-SA-SAC20220310001707

PATIENT
  Sex: Female

DRUGS (1)
  1. DUPIXENT [Suspect]
     Active Substance: DUPILUMAB
     Indication: Dermatitis atopic
     Dosage: 300 MG/2ML , INJECT 1 SYRINGE (300 MG) UNDER THE SKIN (SUBCUTANEOUS INJECTION) EVERY 14 DAYS ON WEDN
     Route: 058
     Dates: start: 20180920

REACTIONS (3)
  - Pain [Not Recovered/Not Resolved]
  - Dermatitis atopic [Unknown]
  - Loss of personal independence in daily activities [Unknown]
